FAERS Safety Report 6213310-2 (Version None)
Quarter: 2009Q2

REPORT INFORMATION
  Report Type: 
  Country: None (occurrence: None)
  Receive Date: 20090601
  Receipt Date: 20090519
  Transmission Date: 20091009
  Serious: Yes (Hospitalization)
  Sender: FDA-Public Use
  Company Number: 2009-01877

PATIENT
  Age: 47 Year
  Sex: Female

DRUGS (3)
  1. VELCADE [Suspect]
     Indication: MULTIPLE MYELOMA
     Dosage: INTRAVENOUS
     Route: 042
     Dates: start: 20090420, end: 20090430
  2. DEXAMETHASONE TAB [Suspect]
     Indication: MULTIPLE MYELOMA
     Dosage: ORAL
     Route: 048
     Dates: start: 20090420, end: 20090501
  3. DOXORUBICIN HCL [Suspect]
     Indication: MULTIPLE MYELOMA
     Dosage: INTRAVENOUS
     Route: 042
     Dates: start: 20090420, end: 20090423

REACTIONS (5)
  - DRUG ERUPTION [None]
  - HERPES ZOSTER DISSEMINATED [None]
  - LEUKOCYTOCLASTIC VASCULITIS [None]
  - LICHENOID KERATOSIS [None]
  - LOWER RESPIRATORY TRACT INFECTION [None]
